FAERS Safety Report 15651981 (Version 7)
Quarter: 2019Q1

REPORT INFORMATION
  Report Type: Spontaneous
  Country: US (occurrence: US)
  Receive Date: 20181123
  Receipt Date: 20190109
  Transmission Date: 20190417
  Serious: Yes (Life-Threatening, Hospitalization, Other)
  Sender: FDA-Public Use
  Company Number: PHEH2018US049180

PATIENT
  Age: 49 Year
  Sex: Female

DRUGS (6)
  1. DOXYCYCLINE. [Suspect]
     Active Substance: DOXYCYCLINE
     Indication: PRODUCT USED FOR UNKNOWN INDICATION
     Dosage: 100 MG, BID
     Route: 042
  2. IMIPENEM [Suspect]
     Active Substance: IMIPENEM
     Indication: MYCOBACTERIUM CHELONAE INFECTION
     Dosage: 1 G, Q12H
     Route: 042
  3. PREDNISONE. [Suspect]
     Active Substance: PREDNISONE
     Indication: PRODUCT USED FOR UNKNOWN INDICATION
     Dosage: 6 MG, UNK
     Route: 065
  4. IMIPENEM [Suspect]
     Active Substance: IMIPENEM
     Dosage: 1 G, Q8H
     Route: 042
     Dates: start: 20180322, end: 20181114
  5. CLARITHROMYCIN. [Suspect]
     Active Substance: CLARITHROMYCIN
     Indication: MYCOBACTERIUM CHELONAE INFECTION
     Dosage: 500 MG, BID
     Route: 048
     Dates: start: 20180322, end: 20180418
  6. TOBRAMYCIN. [Suspect]
     Active Substance: TOBRAMYCIN
     Indication: MYCOBACTERIUM CHELONAE INFECTION
     Dosage: 320 MG, Q24H
     Route: 042
     Dates: start: 20180322, end: 20180716

REACTIONS (15)
  - Vomiting [Recovered/Resolved]
  - Cellulitis [Unknown]
  - Granuloma [Unknown]
  - Soft tissue mass [Unknown]
  - Fibrosis [Unknown]
  - Nausea [Recovered/Resolved]
  - Ototoxicity [Recovered/Resolved with Sequelae]
  - Inflammation [Unknown]
  - Abscess [Unknown]
  - Angioedema [Recovered/Resolved]
  - Drug intolerance [Unknown]
  - Liver function test increased [Recovered/Resolved]
  - Alanine aminotransferase increased [Unknown]
  - Blood potassium decreased [Unknown]
  - Aspartate aminotransferase increased [Unknown]

NARRATIVE: CASE EVENT DATE: 20180410
